FAERS Safety Report 8343312-1 (Version None)
Quarter: 2012Q2

REPORT INFORMATION
  Report Type: 
  Country: None (occurrence: None)
  Receive Date: 20120508
  Receipt Date: 20120503
  Transmission Date: 20120825
  Serious: No
  Sender: FDA-Public Use
  Company Number: PHHY2012FR016048

PATIENT
  Sex: Female
  Weight: 54 kg

DRUGS (2)
  1. GILENYA [Suspect]
     Indication: MULTIPLE SCLEROSIS
     Dosage: 0.5 MG, PER DAY
     Route: 048
     Dates: start: 20120216
  2. GABAPENTIN [Concomitant]
     Indication: NEURALGIA
     Dosage: 100 MG, BID
     Dates: start: 20101207

REACTIONS (1)
  - BUNDLE BRANCH BLOCK RIGHT [None]
